FAERS Safety Report 11969465 (Version 1)
Quarter: 2016Q1

REPORT INFORMATION
  Report Type: Spontaneous
  Country: DE (occurrence: DE)
  Receive Date: 20160128
  Receipt Date: 20160128
  Transmission Date: 20160526
  Serious: Yes (Other)
  Sender: FDA-Public Use
  Company Number: DE-DRREDDYS-GER/GER/16/0065483

PATIENT
  Sex: Male

DRUGS (5)
  1. BISOPROLOL-CT 2,5 MG [Suspect]
     Active Substance: BISOPROLOL
     Indication: PRODUCT USED FOR UNKNOWN INDICATION
  2. PENTALONG [Suspect]
     Active Substance: PENTAERYTHRITOL TETRANITRATE
     Indication: PRODUCT USED FOR UNKNOWN INDICATION
  3. ISOKET RETARD 20 MG [Suspect]
     Active Substance: ISOSORBIDE DINITRATE
     Indication: PRODUCT USED FOR UNKNOWN INDICATION
  4. TORASEMID - 1 A PHARMA 10 MG TABLETTEN [Suspect]
     Active Substance: TORSEMIDE
     Indication: PRODUCT USED FOR UNKNOWN INDICATION
  5. SIMVABETA 20 MG FILMTABLETTEN [Suspect]
     Active Substance: SIMVASTATIN
     Indication: PRODUCT USED FOR UNKNOWN INDICATION

REACTIONS (16)
  - Abdominal discomfort [Unknown]
  - Respiratory distress [Unknown]
  - Alopecia [Unknown]
  - Headache [Unknown]
  - Arrhythmia [Unknown]
  - Hypoventilation [Unknown]
  - Auditory disorder [Unknown]
  - Abdominal distension [Unknown]
  - Dizziness [Unknown]
  - Muscular weakness [Unknown]
  - Fatigue [Unknown]
  - Blood pressure fluctuation [Unknown]
  - Visual impairment [Unknown]
  - Dyspepsia [Unknown]
  - Arthralgia [Unknown]
  - Asthenia [Unknown]
